FAERS Safety Report 7489030-3 (Version None)
Quarter: 2011Q2

REPORT INFORMATION
  Report Type: 
  Country: None (occurrence: None)
  Receive Date: 20110518
  Receipt Date: 20110516
  Transmission Date: 20111010
  Serious: Yes (Other)
  Sender: FDA-Public Use
  Company Number: GB-PFIZER INC-2011104458

PATIENT
  Age: 37 Year
  Sex: Male

DRUGS (2)
  1. VARENICLINE TARTRATE [Suspect]
     Indication: SMOKING CESSATION THERAPY
     Dosage: UNK
     Dates: start: 20101209
  2. VARENICLINE TARTRATE [Suspect]
     Dosage: 1 MG, 2X/DAY
     Dates: end: 20110106

REACTIONS (6)
  - DEPRESSED MOOD [None]
  - LOSS OF EMPLOYMENT [None]
  - ALCOHOL USE [None]
  - PHYSICAL ASSAULT [None]
  - FEELING ABNORMAL [None]
  - INTENTIONAL OVERDOSE [None]
